FAERS Safety Report 16115410 (Version 1)
Quarter: 2019Q1

REPORT INFORMATION
  Report Type: Spontaneous
  Country: BR (occurrence: BR)
  Receive Date: 20190325
  Receipt Date: 20190325
  Transmission Date: 20190418
  Serious: Yes (Other)
  Sender: FDA-Public Use
  Company Number: PHHY2019BR064212

PATIENT
  Age: 59 Year
  Sex: Female

DRUGS (1)
  1. FORASEQ [Suspect]
     Active Substance: BUDESONIDE\FORMOTEROL FUMARATE
     Indication: ASTHMA
     Dosage: 1 DF, QD
     Route: 048
     Dates: end: 20190311

REACTIONS (16)
  - Anxiety [Unknown]
  - Inappropriate schedule of product administration [Unknown]
  - Emotional disorder [Unknown]
  - Fall [Not Recovered/Not Resolved]
  - Limb injury [Not Recovered/Not Resolved]
  - Burning sensation [Unknown]
  - Asthmatic crisis [Not Recovered/Not Resolved]
  - Joint injury [Not Recovered/Not Resolved]
  - Dyspnoea [Unknown]
  - Varicose vein [Unknown]
  - Suffocation feeling [Unknown]
  - Feeling hot [Unknown]
  - Accident [Unknown]
  - Insomnia [Unknown]
  - Musculoskeletal pain [Not Recovered/Not Resolved]
  - Arthralgia [Not Recovered/Not Resolved]

NARRATIVE: CASE EVENT DATE: 20170411
